FAERS Safety Report 23040744 (Version 2)
Quarter: 2023Q4

REPORT INFORMATION
  Report Type: Spontaneous
  Country: DE (occurrence: DE)
  Receive Date: 20231006
  Receipt Date: 20231019
  Transmission Date: 20240110
  Serious: Yes (Life-Threatening, Hospitalization, Other)
  Sender: FDA-Public Use
  Company Number: DE-GLAXOSMITHKLINE-DE2023EME135399

PATIENT

DRUGS (1)
  1. ZEJULA [Suspect]
     Active Substance: NIRAPARIB
     Indication: Ovarian cancer
     Dosage: UNK UNK, BID
     Dates: start: 202309

REACTIONS (21)
  - Pruritus [Unknown]
  - Photosensitivity reaction [Unknown]
  - Odynophagia [Unknown]
  - Stomatitis [Unknown]
  - Platelet count decreased [Unknown]
  - White blood cell count decreased [Unknown]
  - Red blood cell count decreased [Unknown]
  - Polyneuropathy [Unknown]
  - Condition aggravated [Unknown]
  - Insomnia [Unknown]
  - Malaise [Unknown]
  - Oral pain [Unknown]
  - Dysgeusia [Unknown]
  - Feeding disorder [Unknown]
  - Dyspepsia [Unknown]
  - Decreased appetite [Unknown]
  - Food intolerance [Unknown]
  - Asthenia [Unknown]
  - Weight decreased [Unknown]
  - Fatigue [Unknown]
  - Blood pressure increased [Recovered/Resolved]

NARRATIVE: CASE EVENT DATE: 20230901
